FAERS Safety Report 4932897-0 (Version None)
Quarter: 2006Q1

REPORT INFORMATION
  Report Type: 
  Country: None (occurrence: None)
  Receive Date: 20060302
  Receipt Date: 20060302
  Transmission Date: 20060701
  Serious: Yes (Death, Hospitalization)
  Sender: FDA-Public Use
  Company Number: None

PATIENT
  Sex: Female
  Weight: 35 kg

DRUGS (5)
  1. CYTARABINE [Suspect]
     Indication: ACUTE LYMPHOCYTIC LEUKAEMIA
     Dosage: 70 MG
     Route: 037
     Dates: start: 20060214, end: 20060214
  2. DEXAMETHASONE [Suspect]
     Dosage: 59.5 MG
     Dates: start: 20060214, end: 20060223
  3. METHOTREXATE [Suspect]
     Dosage: 15 MG
     Route: 037
     Dates: start: 20060221, end: 20060221
  4. PEG-L-ASPARAGINASE [Suspect]
     Dosage: 2825 IU
     Dates: start: 20060217, end: 20060217
  5. VINCRISTINE SULFATE [Suspect]
     Dosage: 3.4 MG
     Dates: start: 20060214, end: 20060221

REACTIONS (19)
  - ABDOMINAL DISTENSION [None]
  - BLOOD CREATINE INCREASED [None]
  - BLOOD LACTIC ACID INCREASED [None]
  - BLOOD PRESSURE IMMEASURABLE [None]
  - CAECITIS [None]
  - CYANOSIS [None]
  - DIARRHOEA [None]
  - HAEMATEMESIS [None]
  - NEUTROPENIA [None]
  - OXYGEN SATURATION DECREASED [None]
  - PAIN [None]
  - PALLOR [None]
  - PERIPHERAL COLDNESS [None]
  - PNEUMATOSIS [None]
  - RECTAL HAEMORRHAGE [None]
  - SHOCK [None]
  - SKIN DISCOLOURATION [None]
  - URINE OUTPUT DECREASED [None]
  - VOMITING [None]
